FAERS Safety Report 8935636 (Version 2)
Quarter: 2012Q4

REPORT INFORMATION
  Report Type: 
  Country: CO (occurrence: CO)
  Receive Date: 20121130
  Receipt Date: 20121210
  Transmission Date: 20130627
  Serious: Yes (Hospitalization, Other)
  Sender: FDA-Public Use
  Company Number: CO-PFIZER INC-2012299257

PATIENT
  Age: 12 Year
  Sex: Male

DRUGS (3)
  1. GENOTROPIN [Suspect]
     Indication: GROWTH HORMONE DEFICIENCY
     Dosage: 1.4 mg, 1x/day but the patient rests one day
     Route: 058
     Dates: start: 201208, end: 201210
  2. GENOTROPIN [Suspect]
     Indication: HYPOTHYROIDISM
  3. EUTIROX [Concomitant]
     Indication: HYPOTHYROIDISM
     Dosage: 75 mg, 1x/day (the patient rests one day)
     Route: 048
     Dates: start: 2011

REACTIONS (3)
  - Petechiae [Not Recovered/Not Resolved]
  - Platelet count decreased [Recovering/Resolving]
  - Dysgeusia [Not Recovered/Not Resolved]
